FAERS Safety Report 4781046-0 (Version None)
Quarter: 2005Q3

REPORT INFORMATION
  Report Type: 
  Country: None (occurrence: None)
  Receive Date: 20050926
  Receipt Date: 20050912
  Transmission Date: 20060218
  Serious: Yes (Other)
  Sender: FDA-Public Use
  Company Number: 27148

PATIENT
  Age: 35 Year
  Sex: Male

DRUGS (1)
  1. ALDARA [Suspect]
     Indication: CONDYLOMA ACUMINATUM
     Dosage: (1 UNSPEC., 3 IN 1 WEEK(S); TOPICAL
     Route: 061
     Dates: start: 20050713, end: 20050716

REACTIONS (9)
  - CONDITION AGGRAVATED [None]
  - DERMATITIS [None]
  - DRY SKIN [None]
  - ECZEMA [None]
  - EXFOLIATIVE RASH [None]
  - LYMPHADENOPATHY [None]
  - RASH PRURITIC [None]
  - RASH PUSTULAR [None]
  - SCAB [None]
